FAERS Safety Report 8728648 (Version 5)
Quarter: 2012Q4

REPORT INFORMATION
  Report Type: 
  Country: GB (occurrence: GB)
  Receive Date: 20120817
  Receipt Date: 20120830
  Transmission Date: 20130627
  Serious: Yes (Other)
  Sender: FDA-Public Use
  Company Number: PHFR2012GB003972

PATIENT
  Sex: Female

DRUGS (6)
  1. CLOZARIL [Suspect]
     Indication: SCHIZOPHRENIA
     Dosage: 450 mg, daily
     Route: 048
     Dates: start: 20111118
  2. VENLAFAXINE [Suspect]
     Indication: DEPRESSED MOOD
     Dosage: 150 mg, Daily
     Route: 048
  3. RISPERIDONE [Suspect]
     Indication: SCHIZOPHRENIA
     Dosage: 2 mg, Daily
     Route: 048
  4. SCOPOLAMINE HYDROBROMIDE [Suspect]
     Dosage: 600 ug,Daily
     Route: 048
  5. MIRTAZAPINE [Concomitant]
     Dosage: 45 mg, Daily
     Route: 048
  6. DIAZEPAM [Concomitant]
     Route: 048

REACTIONS (3)
  - Anxiety [Unknown]
  - Tachycardia [Not Recovered/Not Resolved]
  - Therapy responder [Unknown]
